FAERS Safety Report 14419717 (Version 1)
Quarter: 2018Q1

REPORT INFORMATION
  Report Type: Spontaneous
  Country: US (occurrence: US)
  Receive Date: 20180122
  Receipt Date: 20180122
  Transmission Date: 20180509
  Serious: No
  Sender: FDA-Public Use
  Company Number: US-MYLANLABS-2018M1003570

PATIENT
  Sex: Male
  Weight: 101 kg

DRUGS (1)
  1. FENTANYL TRANSDERMAL SYSTEM [Suspect]
     Active Substance: FENTANYL
     Indication: PAIN
     Dosage: ONE PATCH EVERY 72 HOURS
     Route: 062

REACTIONS (4)
  - Balance disorder [Not Recovered/Not Resolved]
  - Product adhesion issue [Unknown]
  - Product storage error [Unknown]
  - Insomnia [Not Recovered/Not Resolved]
